FAERS Safety Report 26218844 (Version 1)
Quarter: 2025Q4

REPORT INFORMATION
  Report Type: Spontaneous
  Country: US (occurrence: US)
  Receive Date: 20251231
  Receipt Date: 20251231
  Transmission Date: 20260118
  Serious: Yes (Other)
  Sender: PFIZER
  Company Number: US-PFIZER INC-PV202500150904

PATIENT
  Age: 74 Year
  Sex: Female

DRUGS (1)
  1. IBRANCE [Suspect]
     Active Substance: PALBOCICLIB
     Dosage: 125 MG, TAKE ONE TABLET DAILY ON DAYS 1-21 EVERY 28 DAY(S). AVOID GRAPEFRUIT AND GRAPEFRUIT JUICE.
     Route: 048

REACTIONS (1)
  - Recurrent cancer [Unknown]
